FAERS Safety Report 6231259-6 (Version None)
Quarter: 2009Q2

REPORT INFORMATION
  Report Type: 
  Country: None (occurrence: None)
  Receive Date: 20090616
  Receipt Date: 20080508
  Transmission Date: 20091009
  Serious: Yes (Hospitalization)
  Sender: FDA-Public Use
  Company Number: DE-JNJCH-2009015774

PATIENT
  Age: 54 Year
  Sex: Female

DRUGS (3)
  1. CETIRIZINE HYDROCHLORIDE [Suspect]
     Indication: ECZEMA
     Dosage: TEXT:UNSPECIFIED
     Route: 048
  2. KETOPROFEN [Suspect]
     Indication: DRUG USE FOR UNKNOWN INDICATION
     Dosage: TEXT:UNSPECIFIED
     Route: 061
  3. BETAMETHASONE [Suspect]
     Indication: ECZEMA
     Dosage: TEXT:UNSPECIFIED
     Route: 061

REACTIONS (5)
  - BACK PAIN [None]
  - CONDITION AGGRAVATED [None]
  - DERMATITIS CONTACT [None]
  - PAIN IN EXTREMITY [None]
  - PYREXIA [None]
